FAERS Safety Report 10574834 (Version 1)
Quarter: 2014Q4

REPORT INFORMATION
  Report Type: Spontaneous
  Country: AU (occurrence: AU)
  Receive Date: 20141110
  Receipt Date: 20141110
  Transmission Date: 20150529
  Serious: Yes (Other)
  Sender: FDA-Public Use
  Company Number: PHHY2014AU145584

PATIENT
  Sex: Female

DRUGS (1)
  1. ACLASTA [Suspect]
     Active Substance: ZOLEDRONIC ACID
     Indication: PRODUCT USED FOR UNKNOWN INDICATION
     Dosage: UNK
     Route: 042
     Dates: start: 201309

REACTIONS (14)
  - Poor venous access [Unknown]
  - Weight decreased [Unknown]
  - Malaise [Unknown]
  - Myalgia [Unknown]
  - Dizziness [Unknown]
  - Vomiting [Unknown]
  - Bone pain [Unknown]
  - Loss of consciousness [Unknown]
  - Infusion site haemorrhage [Unknown]
  - Application site bruise [Unknown]
  - Infusion site swelling [Unknown]
  - Tremor [Unknown]
  - Chills [Unknown]
  - Infusion site discolouration [Unknown]

NARRATIVE: CASE EVENT DATE: 201309
